FAERS Safety Report 10954137 (Version 2)
Quarter: 2015Q2

REPORT INFORMATION
  Report Type: Spontaneous
  Country: US (occurrence: US)
  Receive Date: 20150325
  Receipt Date: 20150506
  Transmission Date: 20150821
  Serious: No
  Sender: FDA-Public Use
  Company Number: US-009507513-1503USA008358

PATIENT
  Age: 68 Year
  Sex: Male

DRUGS (4)
  1. SYLATRON [Suspect]
     Active Substance: PEGINTERFERON ALFA-2B
     Indication: MALIGNANT MELANOMA
     Dosage: UNK
     Route: 058
     Dates: start: 20141201
  2. LIPITOR [Concomitant]
     Active Substance: ATORVASTATIN CALCIUM
  3. ASPIRIN. [Concomitant]
     Active Substance: ASPIRIN
  4. FLOMAX [Concomitant]
     Active Substance: TAMSULOSIN HYDROCHLORIDE

REACTIONS (1)
  - Hepatic enzyme increased [Recovered/Resolved]

NARRATIVE: CASE EVENT DATE: 20150227
